FAERS Safety Report 11704716 (Version 1)
Quarter: 2015Q4

REPORT INFORMATION
  Report Type: Spontaneous
  Country: US (occurrence: US)
  Receive Date: 20151106
  Receipt Date: 20151106
  Transmission Date: 20160304
  Serious: No
  Sender: FDA-Public Use
  Company Number: US-BAYER-2015-442190

PATIENT
  Sex: Female

DRUGS (12)
  1. PREMARIN [Concomitant]
     Active Substance: ESTROGENS, CONJUGATED
  2. OPSUMIT [Concomitant]
     Active Substance: MACITENTAN
  3. GABAPENTIN. [Concomitant]
     Active Substance: GABAPENTIN
  4. AVASTIN [Concomitant]
     Active Substance: BEVACIZUMAB
  5. ALBUTEROL. [Concomitant]
     Active Substance: ALBUTEROL
  6. HYDROCODON HYDROCHLORID KSA [Concomitant]
  7. AZITHROMYCIN [Concomitant]
     Active Substance: AZITHROMYCIN ANHYDROUS
  8. DIGOXIN. [Concomitant]
     Active Substance: DIGOXIN
  9. TYVASO [Suspect]
     Active Substance: TREPROSTINIL
     Indication: PRODUCT USED FOR UNKNOWN INDICATION
     Dosage: 54 ?G, TID
     Route: 055
     Dates: start: 20120719
  10. LYSTEDA [Concomitant]
     Active Substance: TRANEXAMIC ACID
  11. ADEMPAS [Suspect]
     Active Substance: RIOCIGUAT
     Indication: PRODUCT USED FOR UNKNOWN INDICATION
     Dosage: UNK UNK, TID
     Route: 048
  12. GEMFIBROZIL. [Concomitant]
     Active Substance: GEMFIBROZIL

REACTIONS (2)
  - Neuralgia [Recovering/Resolving]
  - Myalgia [Recovering/Resolving]

NARRATIVE: CASE EVENT DATE: 20150831
